FAERS Safety Report 8397500-9 (Version None)
Quarter: 2012Q2

REPORT INFORMATION
  Report Type: 
  Country: None (occurrence: None)
  Receive Date: 20120529
  Receipt Date: 20120529
  Transmission Date: 20120825
  Serious: Yes (Hospitalization, Other)
  Sender: FDA-Public Use
  Company Number: None

PATIENT
  Age: 58 Year
  Sex: Male

DRUGS (3)
  1. INCIVEK [Concomitant]
  2. RIBAVIRIN [Suspect]
     Indication: HEPATITIS C
     Dosage: 200MG QW PO
     Route: 048
     Dates: start: 20120328, end: 20120523
  3. PEGASYS [Suspect]
     Indication: HEPATITIS C
     Dosage: 180MCG QW SQ
     Route: 058
     Dates: start: 20120328, end: 20120523

REACTIONS (7)
  - MUSCULAR WEAKNESS [None]
  - FLANK PAIN [None]
  - IRRITABILITY [None]
  - DIALYSIS [None]
  - DEPRESSION [None]
  - VOMITING [None]
  - NAUSEA [None]
